FAERS Safety Report 9019649 (Version 1)
Quarter: 2013Q1

REPORT INFORMATION
  Report Type: Spontaneous
  Country: US (occurrence: US)
  Receive Date: 20130118
  Receipt Date: 20130118
  Transmission Date: 20140127
  Serious: No
  Sender: FDA-Public Use
  Company Number: US-SANOFI-AVENTIS-2012SA024958

PATIENT
  Age: 59 Year
  Sex: Female

DRUGS (3)
  1. LASIX [Suspect]
     Indication: DIURETIC THERAPY
     Route: 065
     Dates: end: 2010
  2. TRACLEER [Concomitant]
     Indication: PULMONARY ARTERIAL HYPERTENSION
     Dates: start: 2003
  3. NEXIUM /UNK/ [Concomitant]
     Indication: DIURETIC THERAPY

REACTIONS (1)
  - Hypersensitivity [Unknown]
